FAERS Safety Report 19195307 (Version 1)
Quarter: 2021Q2

REPORT INFORMATION
  Report Type: Spontaneous
  Country: US (occurrence: US)
  Receive Date: 20210429
  Receipt Date: 20210429
  Transmission Date: 20210717
  Serious: Yes (Hospitalization)
  Sender: FDA-Public Use
  Company Number: None

PATIENT
  Age: 72 Year
  Sex: Male

DRUGS (4)
  1. ROSUVASTATIN TAB 5MG [Concomitant]
     Active Substance: ROSUVASTATIN
     Dates: start: 20210316
  2. XOLAIR [Suspect]
     Active Substance: OMALIZUMAB
     Dosage: ?          OTHER FREQUENCY:EVERY 4 WEEKS;?
     Route: 058
     Dates: start: 20190515
  3. HYDROXYZ HCL TAB 25MG [Concomitant]
     Dates: start: 20201213
  4. ROSUVASTATIN TAB 5MG [Concomitant]
     Active Substance: ROSUVASTATIN
     Dates: start: 20201214

REACTIONS (1)
  - Cerebrovascular accident [None]

NARRATIVE: CASE EVENT DATE: 20210328
